FAERS Safety Report 7091419-1 (Version None)
Quarter: 2010Q4

REPORT INFORMATION
  Report Type: 
  Country: None (occurrence: None)
  Receive Date: 20101109
  Receipt Date: 20101104
  Transmission Date: 20110411
  Serious: Yes (Hospitalization)
  Sender: FDA-Public Use
  Company Number: B0683062A

PATIENT
  Age: 66 Year
  Sex: Female

DRUGS (11)
  1. EPOPROSTENOL SODIUM [Suspect]
     Route: 042
  2. SITAXSENTAN [Suspect]
     Indication: PULMONARY HYPERTENSION
     Dosage: 100MG PER DAY
     Route: 048
     Dates: start: 20080723
  3. MAGNESIUM GLUCONATE [Concomitant]
  4. ALENDRONATE SODIUM [Concomitant]
  5. PERINDOPRIL [Concomitant]
  6. SERETIDE [Concomitant]
  7. RANITIDINE [Concomitant]
  8. SPIRONOLACTONE [Concomitant]
  9. BUMETANIDE [Concomitant]
  10. SILDENAFIL CITRATE [Concomitant]
  11. DUOVENT [Concomitant]

REACTIONS (3)
  - PAIN IN EXTREMITY [None]
  - PARAESTHESIA [None]
  - SENSORY DISTURBANCE [None]
